FAERS Safety Report 10760183 (Version 1)
Quarter: 2015Q1

REPORT INFORMATION
  Report Type: Spontaneous
  Country: US (occurrence: US)
  Receive Date: 20150204
  Receipt Date: 20150204
  Transmission Date: 20150721
  Serious: Yes (Other)
  Sender: FDA-Public Use
  Company Number: US-CIPLA LTD.-2015US00817

PATIENT

DRUGS (4)
  1. FILGRASTIM [Concomitant]
     Active Substance: FILGRASTIM
     Route: 058
  2. PEGFILGRASTIM [Concomitant]
     Active Substance: PEGFILGRASTIM
     Dosage: 6 MG
     Route: 058
  3. TOPOTECAN [Suspect]
     Active Substance: TOPOTECAN\TOPOTECAN HYDROCHLORIDE
     Indication: CERVIX CARCINOMA RECURRENT
     Dosage: 0.6 MG/M2, ONCE DAILY ON DAYS 1 TO 5 REPEATED EVERY 21 DAYS
     Route: 042
  4. VELIPARIB [Suspect]
     Active Substance: VELIPARIB
     Indication: CERVIX CARCINOMA RECURRENT
     Dosage: 10 MG TWICE A DAY
     Route: 048

REACTIONS (3)
  - Pelvic pain [Unknown]
  - Blood creatinine increased [Unknown]
  - Disease progression [Unknown]
